FAERS Safety Report 8616861-6 (Version None)
Quarter: 2012Q3

REPORT INFORMATION
  Report Type: 
  Country: None (occurrence: None)
  Receive Date: 20120823
  Receipt Date: 20120821
  Transmission Date: 20120928
  Serious: Yes (Hospitalization)
  Sender: FDA-Public Use
  Company Number: ZA-PFIZER INC-2012186494

PATIENT
  Age: 38 Year
  Sex: Male

DRUGS (2)
  1. LOPID [Concomitant]
     Dosage: UNK
  2. LIPITOR [Suspect]
     Indication: BLOOD CHOLESTEROL INCREASED
     Dosage: 20 MG OR 50 MG ONCE DAILY
     Route: 048

REACTIONS (1)
  - PANCREATITIS [None]
